FAERS Safety Report 8427006-X (Version None)
Quarter: 2012Q2

REPORT INFORMATION
  Report Type: 
  Country: None (occurrence: None)
  Receive Date: 20120611
  Receipt Date: 20120601
  Transmission Date: 20120825
  Serious: Yes (Other)
  Sender: FDA-Public Use
  Company Number: US-ABBOTT-12P-163-0942086-00

PATIENT
  Age: 82 Year
  Sex: Female

DRUGS (3)
  1. XANAX [Concomitant]
     Indication: ANXIETY
  2. HUMIRA [Suspect]
     Indication: RHEUMATOID ARTHRITIS
     Dates: start: 19990101
  3. ZOLOFT [Concomitant]
     Indication: DEPRESSION

REACTIONS (5)
  - TENDON GRAFT [None]
  - HIP ARTHROPLASTY [None]
  - DEVICE DISLOCATION [None]
  - RHEUMATOID ARTHRITIS [None]
  - JOINT SURGERY [None]
